FAERS Safety Report 10670897 (Version 1)
Quarter: 2014Q4

REPORT INFORMATION
  Report Type: Spontaneous
  Country: SG (occurrence: SG)
  Receive Date: 20141223
  Receipt Date: 20141223
  Transmission Date: 20150529
  Serious: Yes (Hospitalization)
  Sender: FDA-Public Use
  Company Number: SG-SA-2014SA172360

PATIENT
  Sex: Male

DRUGS (4)
  1. FABRAZYME [Suspect]
     Active Substance: AGALSIDASE BETA
     Route: 041
     Dates: start: 20141030, end: 20141128
  2. CHOLECALCIFEROL [Concomitant]
     Active Substance: CHOLECALCIFEROL
  3. FABRAZYME [Suspect]
     Active Substance: AGALSIDASE BETA
     Route: 041
     Dates: start: 20141030, end: 20141128
  4. LOSARTAN [Concomitant]
     Active Substance: LOSARTAN

REACTIONS (9)
  - Affective disorder [Unknown]
  - Diarrhoea [Recovered/Resolved]
  - Irritability [Unknown]
  - Mood swings [Unknown]
  - Hypohidrosis [Unknown]
  - Neuralgia [Unknown]
  - Aggression [Unknown]
  - Violence-related symptom [Unknown]
  - Vomiting [Recovered/Resolved]

NARRATIVE: CASE EVENT DATE: 20141030
